FAERS Safety Report 9201703 (Version 3)
Quarter: 2013Q2

REPORT INFORMATION
  Report Type: Report from Study
  Country: DE (occurrence: DE)
  Receive Date: 20130401
  Receipt Date: 20130614
  Transmission Date: 20140414
  Serious: Yes (Other)
  Sender: FDA-Public Use
  Company Number: PHHY2013DE031173

PATIENT
  Sex: Female

DRUGS (2)
  1. FTY 720 [Suspect]
     Indication: MULTIPLE SCLEROSIS
     Dosage: 0.5 MG, DAILY
     Route: 048
     Dates: start: 20110510, end: 20130226
  2. FAMPYRA [Concomitant]
     Dosage: 10 MG, BID
     Route: 048
     Dates: start: 20111019

REACTIONS (1)
  - Cervix carcinoma stage 0 [Not Recovered/Not Resolved]
